FAERS Safety Report 15501251 (Version 5)
Quarter: 2019Q3

REPORT INFORMATION
  Report Type: Report from Study
  Country: US (occurrence: US)
  Receive Date: 20181015
  Receipt Date: 20190731
  Transmission Date: 20191004
  Serious: Yes (Death, Life-Threatening, Hospitalization, Other)
  Sender: FDA-Public Use
  Company Number: US-ACTELION-A-NJ2018-174726

PATIENT
  Age: 53 Year
  Sex: Female

DRUGS (13)
  1. MUPIROCIN. [Concomitant]
     Active Substance: MUPIROCIN
  2. CEPHALEXIN. [Concomitant]
     Active Substance: CEPHALEXIN
  3. ATORVASTATIN [Concomitant]
     Active Substance: ATORVASTATIN
  4. CARVEDILOL. [Concomitant]
     Active Substance: CARVEDILOL
  5. ASPIRIN. [Concomitant]
     Active Substance: ASPIRIN
  6. TORSEMIDE. [Concomitant]
     Active Substance: TORSEMIDE
  7. VITAMIN D3 [Concomitant]
     Active Substance: CHOLECALCIFEROL
  8. OPSUMIT [Suspect]
     Active Substance: MACITENTAN
     Indication: PULMONARY ARTERIAL HYPERTENSION
     Dosage: 10 MG, QD
     Route: 048
     Dates: start: 20160525, end: 20190531
  9. CLONIDINE. [Concomitant]
     Active Substance: CLONIDINE
  10. OSELTAMIVIR [Concomitant]
     Active Substance: OSELTAMIVIR
  11. TOPIRAMATE. [Concomitant]
     Active Substance: TOPIRAMATE
  12. GUANFACINE. [Concomitant]
     Active Substance: GUANFACINE
  13. SPIRONOLACTONE. [Concomitant]
     Active Substance: SPIRONOLACTONE

REACTIONS (8)
  - Death [Fatal]
  - Dyspnoea [Recovered/Resolved]
  - Memory impairment [Unknown]
  - Acute respiratory failure [Recovered/Resolved]
  - Unresponsive to stimuli [Recovered/Resolved]
  - Product dose omission [Unknown]
  - Hypoxia [Recovered/Resolved]
  - Fatigue [Unknown]

NARRATIVE: CASE EVENT DATE: 20180825
